FAERS Safety Report 14148447 (Version 1)
Quarter: 2017Q4

REPORT INFORMATION
  Report Type: Spontaneous
  Country: US (occurrence: None)
  Receive Date: 20171031
  Receipt Date: 20171031
  Transmission Date: 20180321
  Serious: Yes (Hospitalization)
  Sender: FDA-Public Use
  Company Number: None

PATIENT
  Sex: Female

DRUGS (1)
  1. DOFETILIDE 0.5 MG MAYNE [Suspect]
     Active Substance: DOFETILIDE
     Route: 048
     Dates: start: 20161108, end: 20171018

REACTIONS (1)
  - Myocardial infarction [None]
